FAERS Safety Report 14143183 (Version 2)
Quarter: 2017Q4

REPORT INFORMATION
  Report Type: Spontaneous
  Country: DE (occurrence: DE)
  Receive Date: 20171030
  Receipt Date: 20171221
  Transmission Date: 20180321
  Serious: Yes (Hospitalization)
  Sender: FDA-Public Use
  Company Number: PHHY2017DE157332

PATIENT
  Sex: Male
  Weight: 16 kg

DRUGS (2)
  1. TRILEPTAL [Suspect]
     Active Substance: OXCARBAZEPINE
     Indication: PRODUCT USED FOR UNKNOWN INDICATION
     Dosage: 60 MG/ML, UNK
     Route: 048
     Dates: start: 201607
  2. TRILEPTAL [Suspect]
     Active Substance: OXCARBAZEPINE
     Dosage: 60 MG/ML, UNK
     Route: 048
     Dates: start: 201708

REACTIONS (3)
  - Seizure [Unknown]
  - Diarrhoea [Unknown]
  - Faeces hard [Unknown]

NARRATIVE: CASE EVENT DATE: 201708
